FAERS Safety Report 12032271 (Version 1)
Quarter: 2016Q1

REPORT INFORMATION
  Report Type: Report from Study
  Country: US (occurrence: US)
  Receive Date: 20160207
  Receipt Date: 20160207
  Transmission Date: 20160526
  Serious: No
  Sender: FDA-Public Use
  Company Number: US-ABBVIE-15K-163-1511340-00

PATIENT
  Age: 39 Year
  Sex: Female
  Weight: 52.21 kg

DRUGS (2)
  1. HUMIRA [Suspect]
     Active Substance: ADALIMUMAB
     Route: 058
     Dates: start: 201511
  2. HUMIRA [Suspect]
     Active Substance: ADALIMUMAB
     Indication: PSORIATIC ARTHROPATHY
     Route: 058
     Dates: start: 201307, end: 201507

REACTIONS (4)
  - Joint swelling [Recovered/Resolved]
  - Gingival bleeding [Recovering/Resolving]
  - Psoriasis [Recovering/Resolving]
  - Dry mouth [Recovered/Resolved]

NARRATIVE: CASE EVENT DATE: 201311
